FAERS Safety Report 4691277-6 (Version None)
Quarter: 2005Q2

REPORT INFORMATION
  Report Type: 
  Country: None (occurrence: None)
  Receive Date: 20050614
  Receipt Date: 20050531
  Transmission Date: 20051028
  Serious: Yes (Hospitalization, Other)
  Sender: FDA-Public Use
  Company Number: 2005081528

PATIENT
  Sex: Female

DRUGS (5)
  1. CELEBREX [Suspect]
     Indication: SPINAL OSTEOARTHRITIS
     Dosage: 200 MG (200 MG, 1 IN 1 D), ORAL
     Route: 048
  2. ASPIRIN [Suspect]
     Indication: ILL-DEFINED DISORDER
     Dosage: ORAL
     Route: 048
  3. ZESTRIL [Concomitant]
  4. FOSAMAX [Concomitant]
  5. DYAZIDE [Concomitant]

REACTIONS (12)
  - ABASIA [None]
  - ANEURYSM RUPTURED [None]
  - COMA [None]
  - FALL [None]
  - HEADACHE [None]
  - HYPERTENSION [None]
  - INCOHERENT [None]
  - MALAISE [None]
  - MUSCLE RUPTURE [None]
  - PULMONARY THROMBOSIS [None]
  - RENAL INJURY [None]
  - WHEELCHAIR USER [None]
